FAERS Safety Report 7217479-2 (Version None)
Quarter: 2010Q4

REPORT INFORMATION
  Report Type: 
  Country: None (occurrence: None)
  Receive Date: 20101229
  Receipt Date: 20101218
  Transmission Date: 20110411
  Serious: Yes (Death, Life-Threatening, Other)
  Sender: FDA-Public Use
  Company Number: CLOF-10514

PATIENT
  Age: 16 Year
  Sex: Male
  Weight: 39 kg

DRUGS (16)
  1. CLOFARABINE (CLOFARABINE) SOLUTION FOR INFUSION [Suspect]
     Indication: ACUTE LYMPHOCYTIC LEUKAEMIA
     Dosage: 30 MG/M2, QD, INTRAVENOUS
     Route: 042
     Dates: start: 20070418, end: 20070420
  2. CYCLOPHOSPHAMIDE [Suspect]
     Indication: ACUTE LYMPHOCYTIC LEUKAEMIA
     Dosage: 200  MG/M2, QD, INTRAVENOUS, 400 MG/M2, INTRAVENOUS
     Route: 042
     Dates: start: 20070417, end: 20070418
  3. CYCLOPHOSPHAMIDE [Suspect]
     Indication: ACUTE LYMPHOCYTIC LEUKAEMIA
     Dosage: 200  MG/M2, QD, INTRAVENOUS, 400 MG/M2, INTRAVENOUS
     Route: 042
     Dates: start: 20070419, end: 20070420
  4. ACETAMINOPHEN [Concomitant]
  5. ALLOPURINOL [Concomitant]
  6. HYDROCORTONE [Concomitant]
  7. ACETAMINOPHEN [Concomitant]
  8. AMBIEN [Concomitant]
  9. DEXAMETHASONE [Concomitant]
  10. HYDROMORPHONE HCL [Concomitant]
  11. LORAZEPAM [Concomitant]
  12. NALOXONE [Concomitant]
  13. ONDANSETRON [Concomitant]
  14. OXYCODONE HCL [Concomitant]
  15. PANTOPRAZOLE [Concomitant]
  16. SCOPOLAMINE (HYOSCINE HYDROBROMIDE) [Concomitant]

REACTIONS (13)
  - ALANINE AMINOTRANSFERASE INCREASED [None]
  - ASPARTATE AMINOTRANSFERASE INCREASED [None]
  - BLOOD ALKALINE PHOSPHATASE INCREASED [None]
  - HAEMOGLOBIN DECREASED [None]
  - HYPERBILIRUBINAEMIA [None]
  - HYPOKALAEMIA [None]
  - LYMPHOPENIA [None]
  - NEUTROPHIL COUNT DECREASED [None]
  - PLATELET COUNT DECREASED [None]
  - RENAL FAILURE [None]
  - RESPIRATORY FAILURE [None]
  - VOMITING [None]
  - WHITE BLOOD CELL COUNT DECREASED [None]
